FAERS Safety Report 13987701 (Version 2)
Quarter: 2017Q3

REPORT INFORMATION
  Report Type: Spontaneous
  Country: US (occurrence: US)
  Receive Date: 20170919
  Receipt Date: 20170922
  Transmission Date: 20171128
  Serious: Yes (Other)
  Sender: FDA-Public Use
  Company Number: US-PFIZER INC-2017402993

PATIENT

DRUGS (1)
  1. PREMARIN [Suspect]
     Active Substance: ESTROGENS, CONJUGATED
     Dosage: UNK

REACTIONS (7)
  - Dizziness [Unknown]
  - Seizure [Unknown]
  - Hyperhidrosis [Unknown]
  - Stupor [Unknown]
  - Exostosis [Unknown]
  - Headache [Unknown]
  - Motor dysfunction [Unknown]
